FAERS Safety Report 4828697-2 (Version None)
Quarter: 2005Q4

REPORT INFORMATION
  Report Type: 
  Country: None (occurrence: None)
  Receive Date: 20051115
  Receipt Date: 20051003
  Transmission Date: 20060501
  Serious: Yes (Other)
  Sender: FDA-Public Use
  Company Number: PHBS2005JP14527

PATIENT
  Sex: Male

DRUGS (2)
  1. TEGRETOL [Suspect]
     Dosage: 400 MG/DAY
     Route: 048
  2. PHENYTOIN [Concomitant]
     Route: 048

REACTIONS (3)
  - AMMONIA INCREASED [None]
  - NERVOUS SYSTEM DISORDER [None]
  - NEURODEGENERATIVE DISORDER [None]
